FAERS Safety Report 10471578 (Version 3)
Quarter: 2017Q2

REPORT INFORMATION
  Report Type: Spontaneous
  Country: CA (occurrence: CA)
  Receive Date: 20140923
  Receipt Date: 20170529
  Transmission Date: 20170829
  Serious: Yes (Disabling)
  Sender: FDA-Public Use
  Company Number: CA-009507513-1409CAN010438

PATIENT
  Age: 60 Year
  Sex: Female
  Weight: 58.96 kg

DRUGS (1)
  1. FOSAMAX [Suspect]
     Active Substance: ALENDRONATE SODIUM
     Dosage: 70.0 MILLIGRAM, 1 EVERY 1 WEEK
     Route: 048
     Dates: start: 20140105, end: 20140112

REACTIONS (3)
  - Blood creatine phosphokinase increased [Recovered/Resolved]
  - Myalgia [Recovered/Resolved]
  - Aspartate aminotransferase increased [Recovered/Resolved]

NARRATIVE: CASE EVENT DATE: 201401
